FAERS Safety Report 4346104-3 (Version None)
Quarter: 2004Q1

REPORT INFORMATION
  Report Type: 
  Country: None (occurrence: None)
  Receive Date: 20040325
  Receipt Date: 20040112
  Transmission Date: 20041129
  Serious: No
  Sender: FDA-Public Use
  Company Number: USA040156315

PATIENT
  Age: 69 Year
  Sex: Female

DRUGS (13)
  1. FORTEO [Suspect]
     Dates: start: 20031222
  2. VITAMIN CAP [Concomitant]
  3. BENICAR (BENICAR) [Concomitant]
  4. PREVACID [Concomitant]
  5. VITAMIN C [Concomitant]
  6. KLOR-CON [Concomitant]
  7. CALCIUM [Concomitant]
  8. HYDROCHLOROTHIAZIDE [Concomitant]
  9. ZETIA [Concomitant]
  10. LIPITOR [Concomitant]
  11. ASPIRIN [Concomitant]
  12. FOSAMAX [Concomitant]
  13. ESTRACE [Concomitant]

REACTIONS (7)
  - ABNORMAL DREAMS [None]
  - DEPRESSION [None]
  - DIZZINESS [None]
  - FATIGUE [None]
  - INSOMNIA [None]
  - SLEEP DISORDER [None]
  - SOMNOLENCE [None]
